FAERS Safety Report 20879491 (Version 1)
Quarter: 2022Q2

REPORT INFORMATION
  Report Type: Spontaneous
  Country: US (occurrence: US)
  Receive Date: 20220526
  Receipt Date: 20220526
  Transmission Date: 20220721
  Serious: No
  Sender: FDA-Public Use
  Company Number: US-RADIUS HEALTH INC.-2021US004759

PATIENT
  Age: 75 Year
  Sex: Female

DRUGS (2)
  1. TYMLOS [Suspect]
     Active Substance: ABALOPARATIDE
     Indication: Osteoporosis
     Dosage: 80 MICROGRAM, QD
     Route: 058
     Dates: start: 20211025, end: 20211026
  2. TYLENOL [Concomitant]
     Active Substance: ACETAMINOPHEN
     Indication: Spinal pain

REACTIONS (7)
  - Discomfort [Recovered/Resolved]
  - Tremor [Not Recovered/Not Resolved]
  - Head discomfort [Recovered/Resolved]
  - Malaise [Not Recovered/Not Resolved]
  - Pain [Recovered/Resolved]
  - Headache [Not Recovered/Not Resolved]
  - Dizziness [Not Recovered/Not Resolved]

NARRATIVE: CASE EVENT DATE: 20211025
